FAERS Safety Report 8822097 (Version 1)
Quarter: 2012Q4

REPORT INFORMATION
  Report Type: 
  Country: US (occurrence: US)
  Receive Date: 20121003
  Receipt Date: 20121003
  Transmission Date: 20130627
  Serious: Yes (Other)
  Sender: FDA-Public Use
  Company Number: US-BAYER-2012-101148

PATIENT
  Age: 21 Year
  Sex: Female

DRUGS (4)
  1. YAZ [Suspect]
  2. AZITHROMYCIN [Concomitant]
     Dosage: 250 mg, UNK
  3. FLUTICASONE [Concomitant]
     Route: 045
  4. DIFFERIN [Concomitant]
     Dosage: 45 mg, UNK

REACTIONS (1)
  - Thrombosis [None]
